FAERS Safety Report 9986253 (Version 2)
Quarter: 2014Q1

REPORT INFORMATION
  Report Type: Spontaneous
  Country: PR (occurrence: PR)
  Receive Date: 20140307
  Receipt Date: 20140307
  Transmission Date: 20141002
  Serious: No
  Sender: FDA-Public Use
  Company Number: PR-ABBVIE-13P-131-1074533-00

PATIENT
  Age: 41 Year
  Sex: Female

DRUGS (5)
  1. HUMIRA [Suspect]
     Indication: RHEUMATOID ARTHRITIS
     Route: 058
  2. FOLIC ACID [Concomitant]
     Indication: OSTEOARTHRITIS
     Route: 048
     Dates: start: 2011
  3. CATAFLAM [Concomitant]
     Indication: OSTEOARTHRITIS
     Dates: start: 2011
  4. NORFLEX [Concomitant]
     Indication: OSTEOARTHRITIS
     Route: 048
  5. METHOTREXATE [Concomitant]
     Indication: RHEUMATOID ARTHRITIS
     Route: 048
     Dates: start: 2012

REACTIONS (1)
  - Injection site pain [Recovered/Resolved]
